FAERS Safety Report 6598505-0 (Version None)
Quarter: 2010Q1

REPORT INFORMATION
  Report Type: 
  Country: None (occurrence: None)
  Receive Date: 20100224
  Receipt Date: 20050112
  Transmission Date: 20100710
  Serious: No
  Sender: FDA-Public Use
  Company Number: US-ALLERGAN-200500617

PATIENT
  Age: 42 Year
  Sex: Female

DRUGS (4)
  1. BOTOX COSMETIC [Suspect]
     Indication: SKIN WRINKLING
     Dosage: 45UNITS, SINGLE
     Route: 030
     Dates: start: 20040916, end: 20040916
  2. BOTOX COSMETIC [Suspect]
     Dosage: 60UNITS, SINGLE
     Route: 030
     Dates: start: 20040907, end: 20040907
  3. BOTOX COSMETIC [Suspect]
     Dosage: 60UNITS, SINGLE
     Route: 030
     Dates: start: 20040401, end: 20040401
  4. BOTOX COSMETIC [Suspect]
     Dosage: 60UNITS, SINGLE
     Route: 030
     Dates: start: 20040201, end: 20040201

REACTIONS (2)
  - DRUG INEFFECTIVE [None]
  - THERAPEUTIC RESPONSE DECREASED [None]
